FAERS Safety Report 11469341 (Version 1)
Quarter: 2015Q3

REPORT INFORMATION
  Report Type: Spontaneous
  Country: US (occurrence: US)
  Receive Date: 20150908
  Receipt Date: 20150908
  Transmission Date: 20151125
  Serious: No
  Sender: FDA-Public Use
  Company Number: US-GLAXOSMITHKLINE-US2015GSK126047

PATIENT
  Sex: Female

DRUGS (2)
  1. HYCAMTIN [Suspect]
     Active Substance: TOPOTECAN HYDROCHLORIDE
     Indication: HEPATIC CANCER
     Dosage: 3 MG, QD FOR 5 DAYS EVERY 3 WEEKS
     Dates: start: 20150801
  2. HYCAMTIN [Suspect]
     Active Substance: TOPOTECAN HYDROCHLORIDE
     Indication: FALLOPIAN TUBE CANCER
     Dosage: 0.5 MG, QD FOR 5 DAYS EVERY 3 WEEKS
     Dates: start: 20150801

REACTIONS (2)
  - Anorectal discomfort [Unknown]
  - Alopecia [Not Recovered/Not Resolved]
